FAERS Safety Report 15026583 (Version 1)
Quarter: 2018Q2

REPORT INFORMATION
  Report Type: Spontaneous
  Country: GB (occurrence: GB)
  Receive Date: 20180618
  Receipt Date: 20180618
  Transmission Date: 20180711
  Serious: Yes (Other)
  Sender: FDA-Public Use
  Company Number: GB-GILEAD-2018-0343521

PATIENT
  Age: 85 Year
  Sex: Male

DRUGS (6)
  1. IRON [Concomitant]
     Active Substance: IRON
  2. DESCOVY [Suspect]
     Active Substance: EMTRICITABINE\TENOFOVIR ALAFENAMIDE FUMARATE
     Indication: HIV INFECTION
     Dosage: 1 DF, QD
     Route: 048
     Dates: start: 2015
  3. LISINOPRIL. [Concomitant]
     Active Substance: LISINOPRIL
  4. RIVAROXABAN [Concomitant]
     Active Substance: RIVAROXABAN
     Dosage: 15 MG, UNK
  5. AMIODARONE [Suspect]
     Active Substance: AMIODARONE
     Indication: PRODUCT USED FOR UNKNOWN INDICATION
     Dosage: 1 DF, UNK
     Route: 065
  6. FRUSEMIDE                          /00032601/ [Concomitant]
     Active Substance: FUROSEMIDE

REACTIONS (1)
  - Cardioversion [Unknown]

NARRATIVE: CASE EVENT DATE: 201710
